FAERS Safety Report 4872184-2 (Version None)
Quarter: 2006Q1

REPORT INFORMATION
  Report Type: 
  Country: None (occurrence: None)
  Receive Date: 20060103
  Receipt Date: 20051219
  Transmission Date: 20060701
  Serious: Yes (Other)
  Sender: FDA-Public Use
  Company Number: 2005RR-01384

PATIENT
  Age: 53 Year
  Sex: Female

DRUGS (3)
  1. ISOTRETINOIN [Suspect]
     Indication: ROSACEA
     Dosage: 20 MG, QD
  2. METRONIDAZOLE [Concomitant]
  3. VIBRAMYCIN [Concomitant]

REACTIONS (4)
  - CHEILITIS [None]
  - EYE IRRITATION [None]
  - NAIL DISORDER [None]
  - XEROSIS [None]
